FAERS Safety Report 5735924-6 (Version None)
Quarter: 2008Q2

REPORT INFORMATION
  Report Type: 
  Country: None (occurrence: None)
  Receive Date: 20080509
  Receipt Date: 20080505
  Transmission Date: 20081010
  Serious: Yes (Other)
  Sender: FDA-Public Use
  Company Number: 2008011669

PATIENT
  Age: 5 Year
  Sex: Male
  Weight: 17.7 kg

DRUGS (2)
  1. ZYRTEC ALLERGY [Suspect]
     Indication: HYPERSENSITIVITY
     Dosage: HALF A TEASPOON, ONCE, ORAL
     Route: 048
     Dates: start: 20080501, end: 20080504
  2. SINGULAIR ^DIECKMANN^ (MONTELUKAST SODIUM) [Concomitant]

REACTIONS (1)
  - BRONCHITIS [None]
